FAERS Safety Report 25075650 (Version 2)
Quarter: 2025Q4

REPORT INFORMATION
  Report Type: Spontaneous
  Country: JP (occurrence: JP)
  Receive Date: 20250313
  Receipt Date: 20251029
  Transmission Date: 20260118
  Serious: Yes (Other)
  Sender: BRISTOL-MYERS SQUIBB COMPANY
  Company Number: JP-BRISTOL-MYERS SQUIBB COMPANY-2025-037974

PATIENT
  Age: 61 Year
  Sex: Male
  Weight: 60 kg

DRUGS (7)
  1. POMALYST [Suspect]
     Active Substance: POMALIDOMIDE
     Indication: Plasma cell myeloma
     Dates: start: 20210225, end: 20220221
  2. POMALYST [Suspect]
     Active Substance: POMALIDOMIDE
     Dates: start: 20231026, end: 20231231
  3. ISATUXIMAB [Suspect]
     Active Substance: ISATUXIMAB
     Indication: Plasma cell myeloma
     Dates: start: 20210225, end: 20220221
  4. ISATUXIMAB [Suspect]
     Active Substance: ISATUXIMAB
     Dates: start: 20231026, end: 20231231
  5. CORTICOSTEROID NOS [Concomitant]
     Active Substance: CORTICOSTEROID NOS
     Indication: Plasma cell myeloma
     Dates: start: 20200123, end: 20210208
  6. CORTICOSTEROID NOS [Concomitant]
     Active Substance: CORTICOSTEROID NOS
     Dates: start: 20210225, end: 20220221
  7. CORTICOSTEROID NOS [Concomitant]
     Active Substance: CORTICOSTEROID NOS
     Dates: start: 20231026, end: 20231231

REACTIONS (2)
  - COVID-19 pneumonia [Unknown]
  - Plasma cell myeloma [Unknown]

NARRATIVE: CASE EVENT DATE: 20220221
